FAERS Safety Report 12332506 (Version 1)
Quarter: 2016Q2

REPORT INFORMATION
  Report Type: Other
  Country: US (occurrence: US)
  Receive Date: 20160504
  Receipt Date: 20160504
  Transmission Date: 20160815
  Serious: Yes (Other)
  Sender: FDA-Public Use
  Company Number: US-SHIRE-US201604759

PATIENT
  Age: 12 Year
  Sex: Female

DRUGS (2)
  1. PENTASA [Suspect]
     Active Substance: MESALAMINE
     Dosage: 500 MG, 4X/DAY:QID
     Route: 048
  2. PENTASA [Suspect]
     Active Substance: MESALAMINE
     Indication: PRODUCT USED FOR UNKNOWN INDICATION
     Dosage: 500 MG, 1X/DAY:QD
     Route: 048

REACTIONS (6)
  - Haematochezia [Recovering/Resolving]
  - Drug dose omission [Recovered/Resolved]
  - Flank pain [Recovering/Resolving]
  - Drug administered to patient of inappropriate age [Not Recovered/Not Resolved]
  - Pyrexia [Recovering/Resolving]
  - Blood test abnormal [Recovering/Resolving]

NARRATIVE: CASE EVENT DATE: 20160414
